FAERS Safety Report 15035963 (Version 1)
Quarter: 2018Q2

REPORT INFORMATION
  Report Type: Spontaneous
  Country: US (occurrence: US)
  Receive Date: 20180620
  Receipt Date: 20180620
  Transmission Date: 20180711
  Serious: Yes (Other)
  Sender: FDA-Public Use
  Company Number: PHEH2018US023463

PATIENT
  Sex: Female

DRUGS (1)
  1. GILENYA [Suspect]
     Active Substance: FINGOLIMOD HYDROCHLORIDE
     Indication: PRODUCT USED FOR UNKNOWN INDICATION
     Route: 065

REACTIONS (8)
  - Disease progression [Unknown]
  - Drug ineffective [Unknown]
  - Influenza like illness [Unknown]
  - Diarrhoea [Unknown]
  - Nuclear magnetic resonance imaging abnormal [Unknown]
  - Injection site reaction [Unknown]
  - Nausea [Unknown]
  - Abdominal pain [Unknown]
